FAERS Safety Report 14355801 (Version 3)
Quarter: 2018Q3

REPORT INFORMATION
  Report Type: Report from Study
  Country: CA (occurrence: CA)
  Receive Date: 20180105
  Receipt Date: 20180822
  Transmission Date: 20181010
  Serious: Yes (Other)
  Sender: FDA-Public Use
  Company Number: PHHY2016CA163494

PATIENT
  Age: 69 Year
  Sex: Male

DRUGS (7)
  1. CODEINE [Concomitant]
     Active Substance: CODEINE
     Indication: PRODUCT USED FOR UNKNOWN INDICATION
     Dosage: UNK
     Route: 065
  2. MORPHINE [Suspect]
     Active Substance: MORPHINE
     Indication: PRODUCT USED FOR UNKNOWN INDICATION
     Dosage: UNK
     Route: 065
  3. METOPROLOL. [Suspect]
     Active Substance: METOPROLOL
     Indication: PRODUCT USED FOR UNKNOWN INDICATION
     Dosage: 100 MG, QD (DIE)
     Route: 048
  4. SANDOSTATIN LAR DEPOT [Suspect]
     Active Substance: OCTREOTIDE ACETATE
     Indication: CARCINOID TUMOUR
     Dosage: 20 MG, QMO (ONCE IN A MONTH)
     Route: 030
     Dates: start: 2015
  5. GRAVOL [Suspect]
     Active Substance: DIMENHYDRINATE
     Indication: PRODUCT USED FOR UNKNOWN INDICATION
     Dosage: UNK
     Route: 065
  6. DILAUDID [Concomitant]
     Active Substance: HYDROMORPHONE HYDROCHLORIDE
     Indication: PRODUCT USED FOR UNKNOWN INDICATION
     Dosage: UNK
     Route: 065
  7. ATIVAN [Concomitant]
     Active Substance: LORAZEPAM
     Indication: PRODUCT USED FOR UNKNOWN INDICATION
     Dosage: UNK
     Route: 065

REACTIONS (13)
  - Metastases to liver [Unknown]
  - Bradycardia [Unknown]
  - Blood pressure increased [Unknown]
  - Vomiting [Unknown]
  - Malaise [Unknown]
  - Pain in extremity [Unknown]
  - Hepatic lesion [Unknown]
  - Herpes zoster [Recovering/Resolving]
  - Malignant neoplasm progression [Unknown]
  - Blood pressure systolic increased [Unknown]
  - Nausea [Unknown]
  - Injection site pain [Unknown]
  - Feeling cold [Unknown]

NARRATIVE: CASE EVENT DATE: 20161123
